FAERS Safety Report 4990743-3 (Version None)
Quarter: 2006Q2

REPORT INFORMATION
  Report Type: 
  Country: None (occurrence: None)
  Receive Date: 20060427
  Receipt Date: 20060418
  Transmission Date: 20061013
  Serious: Yes (Death, Life-Threatening, Hospitalization)
  Sender: FDA-Public Use
  Company Number: 217695

PATIENT
  Age: 9 Year
  Sex: Male

DRUGS (2)
  1. NUTROPIN AQ [Suspect]
     Indication: RADIOTHERAPY
     Dosage: 0.75 MG, QD
     Dates: start: 20021219
  2. RITALIN [Concomitant]

REACTIONS (3)
  - BRAIN STEM GLIOMA [None]
  - CONSTIPATION [None]
  - MEDULLOBLASTOMA [None]
